FAERS Safety Report 19659078 (Version 6)
Quarter: 2023Q2

REPORT INFORMATION
  Report Type: Spontaneous
  Country: JP (occurrence: JP)
  Receive Date: 20210805
  Receipt Date: 20230609
  Transmission Date: 20230721
  Serious: Yes (Hospitalization)
  Sender: FDA-Public Use
  Company Number: JP-JNJFOC-20210803193

PATIENT
  Age: 53 Year
  Sex: Male
  Weight: 69.5 kg

DRUGS (25)
  1. STELARA [Suspect]
     Active Substance: USTEKINUMAB
     Indication: Colitis ulcerative
     Route: 058
     Dates: start: 20201120, end: 20201120
  2. STELARA [Suspect]
     Active Substance: USTEKINUMAB
     Route: 058
     Dates: start: 20210115, end: 20210115
  3. STELARA [Suspect]
     Active Substance: USTEKINUMAB
     Route: 058
     Dates: start: 20210312, end: 20210312
  4. STELARA [Suspect]
     Active Substance: USTEKINUMAB
     Route: 058
     Dates: start: 20210507, end: 20210507
  5. STELARA [Suspect]
     Active Substance: USTEKINUMAB
     Route: 058
     Dates: start: 20210702, end: 20210702
  6. IMURAN [Suspect]
     Active Substance: AZATHIOPRINE
     Indication: Colitis ulcerative
     Route: 048
     Dates: start: 20190622, end: 20190712
  7. IMURAN [Suspect]
     Active Substance: AZATHIOPRINE
     Route: 048
     Dates: start: 20190713, end: 20190912
  8. IMURAN [Suspect]
     Active Substance: AZATHIOPRINE
     Dosage: RIGHT AFTER BREAKFAST
     Route: 048
     Dates: start: 20190913, end: 20210801
  9. XELJANZ [Suspect]
     Active Substance: TOFACITINIB CITRATE
     Indication: Colitis ulcerative
     Route: 048
     Dates: start: 20191123, end: 20201204
  10. XELJANZ [Suspect]
     Active Substance: TOFACITINIB CITRATE
     Route: 048
     Dates: start: 20191123, end: 20201204
  11. CARBOHYDRATES\FATTY ACIDS\MINERALS\PROTEIN\VITAMINS [Concomitant]
     Active Substance: CARBOHYDRATES\FATTY ACIDS\MINERALS\PROTEIN\VITAMINS
     Dosage: , IN THE MORNING
     Route: 065
  12. WHITE PETROLATUM [Concomitant]
     Active Substance: PETROLATUM
     Dosage: DOSE UNKNOWN
     Route: 065
  13. GLYCOSAMINOGLYCANS [Concomitant]
     Active Substance: GLYCOSAMINOGLYCANS
     Dosage: DOSE UNKNOWN, ONE TIME DAILY OR TWO TIMES DAILY
     Route: 061
  14. ELDECALCITOL [Concomitant]
     Active Substance: ELDECALCITOL
     Dosage: RIGHT AFTER BREAKFAST
     Route: 048
  15. PENTASA [Concomitant]
     Active Substance: MESALAMINE
     Dosage: RIGHT AFTER BREAKFAST AND DINNER
     Route: 048
  16. PENTASA [Concomitant]
     Active Substance: MESALAMINE
     Route: 054
  17. MIYA-BM [Concomitant]
     Active Substance: CLOSTRIDIUM BUTYRICUM SPORES STRAIN M-55
     Dosage: RIGHT AFTER EACH MEAL
     Route: 048
  18. DIETARY SUPPLEMENT\PROBIOTICS [Concomitant]
     Active Substance: DIETARY SUPPLEMENT\PROBIOTICS NOS
     Dosage: RIGHT AFTER EACH MEAL
     Route: 048
  19. ATOVAQUONE [Concomitant]
     Active Substance: ATOVAQUONE
     Dosage: RIGHT AFTER DINNER
     Route: 048
  20. REBAMIPIDE [Concomitant]
     Active Substance: REBAMIPIDE
     Dosage: RIGHT AFTER BREAKFAST
     Route: 048
  21. ALLEGRA [Concomitant]
     Active Substance: FEXOFENADINE HYDROCHLORIDE
     Dosage: RIGHT AFTER BREAKFAST AND DINNER
     Route: 048
  22. NEXIUM [Concomitant]
     Active Substance: ESOMEPRAZOLE MAGNESIUM
     Dosage: RIGHT AFTER BREAKFAST
     Route: 048
  23. PREDONINE [Concomitant]
     Active Substance: PREDNISOLONE
     Dosage: RIGHT AFTER BREAKFAST
     Route: 048
  24. PENTASA [Concomitant]
     Active Substance: MESALAMINE
     Dosage: IN THE MORNING
     Route: 054
  25. SODIUM FERROUS CITRATE [Concomitant]
     Active Substance: SODIUM FERROUS CITRATE
     Dosage: RIGHT AFTER BREAKFAST
     Route: 048

REACTIONS (1)
  - Plasmablastic lymphoma [Not Recovered/Not Resolved]

NARRATIVE: CASE EVENT DATE: 20210610
